FAERS Safety Report 4393833-1 (Version None)
Quarter: 2004Q3

REPORT INFORMATION
  Report Type: 
  Country: None (occurrence: None)
  Receive Date: 20040706
  Receipt Date: 20040622
  Transmission Date: 20050211
  Serious: Yes (Hospitalization)
  Sender: FDA-Public Use
  Company Number: 2004-117740-NL

PATIENT
  Age: 89 Year
  Sex: Female

DRUGS (5)
  1. MIRTAZAPINE [Suspect]
     Indication: DEPRESSION
     Dosage: 30 MG
     Route: 048
     Dates: start: 20040519, end: 20040530
  2. ACETAMINOPHEN [Concomitant]
  3. PREDNISOLONE [Concomitant]
  4. MIRTAZAPINE [Concomitant]
  5. ASPIRIN [Concomitant]

REACTIONS (4)
  - CONFUSIONAL STATE [None]
  - MALAISE [None]
  - NAUSEA [None]
  - VOMITING [None]
